FAERS Safety Report 8942106 (Version 3)
Quarter: 2013Q1

REPORT INFORMATION
  Report Type: Spontaneous
  Country: US (occurrence: US)
  Receive Date: 20121203
  Receipt Date: 20130122
  Transmission Date: 20140127
  Serious: Yes (Life-Threatening, Hospitalization, Other)
  Sender: FDA-Public Use
  Company Number: US-ASTRAZENECA-2012SE89944

PATIENT
  Age: 68 Year
  Sex: Female
  Weight: 104.3 kg

DRUGS (21)
  1. NEXIUM [Suspect]
     Indication: GASTROOESOPHAGEAL REFLUX DISEASE
     Route: 048
  2. SEROQUEL [Suspect]
     Indication: SLEEP DISORDER
     Route: 048
  3. SEROQUEL [Suspect]
     Indication: MENTAL DISORDER
     Route: 048
  4. SEROQUEL [Suspect]
     Indication: SLEEP DISORDER
     Route: 048
  5. SEROQUEL [Suspect]
     Indication: MENTAL DISORDER
     Route: 048
  6. CARVEDILOL [Concomitant]
     Indication: CARDIAC DISORDER
     Route: 048
  7. DOTCHLOR [Concomitant]
     Indication: FLUID RETENTION
     Route: 048
  8. HUMOLOG INSULIN [Concomitant]
     Indication: DIABETES MELLITUS
     Route: 048
     Dates: start: 1999
  9. LANTUS [Concomitant]
     Indication: DIABETES MELLITUS
     Route: 048
     Dates: start: 1999
  10. CLONAZEPAM [Concomitant]
     Indication: NERVOUSNESS
     Route: 048
  11. CLONAZEPAM [Concomitant]
     Indication: SLEEP DISORDER
     Route: 048
  12. ATORVASTATIN [Concomitant]
     Indication: CARDIAC DISORDER
     Route: 048
     Dates: start: 2010
  13. FUROSEMIDE [Concomitant]
     Indication: FLUID RETENTION
     Route: 048
  14. PROMIPEXOLE [Concomitant]
     Indication: RESTLESS LEGS SYNDROME
     Route: 048
  15. OXYCONTIN [Concomitant]
     Indication: PAIN
     Route: 048
     Dates: start: 2009
  16. POTASSIUM CHLORIDE [Concomitant]
     Indication: PRODUCT USED FOR UNKNOWN INDICATION
     Route: 048
  17. FOLIC ACID [Concomitant]
     Indication: SUPPLEMENTATION THERAPY
     Route: 048
  18. B 12 [Concomitant]
     Indication: VITAMIN SUPPLEMENTATION
     Route: 048
  19. D3 [Concomitant]
     Indication: VITAMIN SUPPLEMENTATION
     Route: 048
  20. B6 [Concomitant]
     Indication: VITAMIN SUPPLEMENTATION
     Route: 048
  21. B1 [Concomitant]
     Indication: VITAMIN SUPPLEMENTATION
     Route: 048

REACTIONS (17)
  - Renal failure [Unknown]
  - Haematemesis [Unknown]
  - Transient ischaemic attack [Unknown]
  - Diabetes mellitus [Unknown]
  - Pneumonia [Recovered/Resolved]
  - Pericardial effusion [Not Recovered/Not Resolved]
  - Neoplasm malignant [Unknown]
  - Dementia [Not Recovered/Not Resolved]
  - Fatigue [Unknown]
  - Dyspnoea [Unknown]
  - Weight decreased [Unknown]
  - Decreased appetite [Unknown]
  - Blood glucose increased [Unknown]
  - Amnesia [Unknown]
  - Oedema peripheral [Unknown]
  - Dizziness [Unknown]
  - Off label use [Unknown]
